FAERS Safety Report 11614958 (Version 1)
Quarter: 2015Q4

REPORT INFORMATION
  Report Type: Spontaneous
  Country: JP (occurrence: JP)
  Receive Date: 20151009
  Receipt Date: 20151009
  Transmission Date: 20160304
  Serious: Yes (Other)
  Sender: FDA-Public Use
  Company Number: JP-JNJFOC-20151001697

PATIENT

DRUGS (1)
  1. ZYTIGA [Suspect]
     Active Substance: ABIRATERONE ACETATE
     Indication: PROSTATE CANCER
     Route: 048

REACTIONS (10)
  - Somnolence [Unknown]
  - Decreased appetite [Unknown]
  - Hypertension [Unknown]
  - Diabetes mellitus [Unknown]
  - Malaise [Unknown]
  - Renal impairment [Unknown]
  - Dizziness [Unknown]
  - Hepatic function abnormal [Unknown]
  - Neutrophil count decreased [Unknown]
  - Nausea [Unknown]
